FAERS Safety Report 14858910 (Version 2)
Quarter: 2021Q4

REPORT INFORMATION
  Report Type: Spontaneous
  Country: US (occurrence: US)
  Receive Date: 20180508
  Receipt Date: 20211109
  Transmission Date: 20220303
  Serious: Yes (Disabling, Other)
  Sender: FDA-Public Use
  Company Number: US-TEVA-2017-US-834669

PATIENT
  Age: 66 Year
  Sex: Female
  Weight: 86.1 kg

DRUGS (15)
  1. DOCETAXEL [Suspect]
     Active Substance: DOCETAXEL
     Indication: Invasive ductal breast carcinoma
     Dosage: DOSAGE: 137 MG, NO OF CYCLES: 04, FREQUENCY: EVERY THREE WEEKS
     Route: 042
     Dates: start: 20140421, end: 20140421
  2. DOCETAXEL [Suspect]
     Active Substance: DOCETAXEL
     Dosage: DOSAGE: 137 MG, NO OF CYCLES: 04, FREQUENCY: EVERY THREE WEEKS
     Route: 042
     Dates: start: 20140512, end: 20140512
  3. DOCETAXEL [Suspect]
     Active Substance: DOCETAXEL
     Dosage: DOSAGE: 137 MG, NO OF CYCLES: 04, FREQUENCY: EVERY THREE WEEKS
     Route: 042
     Dates: start: 20140602, end: 20140602
  4. DOCETAXEL [Suspect]
     Active Substance: DOCETAXEL
     Dosage: DOSAGE: 137 MG, NO OF CYCLES: 04, FREQUENCY: EVERY THREE WEEKS
     Route: 042
     Dates: start: 20140623, end: 20140623
  5. CYTOXAN [Suspect]
     Active Substance: CYCLOPHOSPHAMIDE
     Indication: Invasive ductal breast carcinoma
     Dosage: NO OF CYCLES: 04, FREQUENCY: EVERY THREE WEEKS
     Route: 042
     Dates: start: 20140421, end: 20140623
  6. RANITIDINE HYDROCHLORIDE [Concomitant]
     Active Substance: RANITIDINE HYDROCHLORIDE
     Dosage: ONGOING
     Dates: start: 201201
  7. QVAR [Concomitant]
     Active Substance: BECLOMETHASONE DIPROPIONATE
     Dosage: ONGOING
     Dates: start: 201201
  8. ALLEGRA [Concomitant]
     Active Substance: FEXOFENADINE HYDROCHLORIDE
     Route: 065
  9. ATORVASTATIN CALCIUM [Concomitant]
     Active Substance: ATORVASTATIN CALCIUM
     Route: 065
  10. BENZONATATE [Concomitant]
     Active Substance: BENZONATATE
     Route: 065
  11. ACETAMINOPHEN\HYDROCODONE [Concomitant]
     Active Substance: ACETAMINOPHEN\HYDROCODONE
     Dosage: 7.5-325
     Route: 065
  12. TOLTERODINE TARTRATE [Concomitant]
     Active Substance: TOLTERODINE TARTRATE
     Route: 065
  13. TRAMADOL HYDROCHLORIDE [Concomitant]
     Active Substance: TRAMADOL HYDROCHLORIDE
     Route: 065
  14. VITAMIN D [Concomitant]
     Active Substance: VITAMIN D NOS
     Route: 065
  15. XOPENEX HFA [Concomitant]
     Active Substance: LEVALBUTEROL TARTRATE
     Route: 065

REACTIONS (22)
  - Alopecia totalis [Not Recovered/Not Resolved]
  - Neutropenia [Unknown]
  - Hair texture abnormal [Not Recovered/Not Resolved]
  - Hair colour changes [Not Recovered/Not Resolved]
  - Rhinorrhoea [Not Recovered/Not Resolved]
  - Oropharyngeal pain [Not Recovered/Not Resolved]
  - Headache [Unknown]
  - Menopausal symptoms [Unknown]
  - Dysphagia [Unknown]
  - Odynophagia [Unknown]
  - Nausea [Unknown]
  - Vomiting [Unknown]
  - Dysuria [Unknown]
  - Sinusitis [Unknown]
  - Erythema [Recovered/Resolved]
  - Hypertension [Recovered/Resolved]
  - Speech disorder [Recovered/Resolved]
  - Chest discomfort [Recovered/Resolved]
  - Constipation [Unknown]
  - Folliculitis [Unknown]
  - Rash papular [Unknown]
  - Rash pruritic [Unknown]

NARRATIVE: CASE EVENT DATE: 20140101
